FAERS Safety Report 11607129 (Version 1)
Quarter: 2015Q3

REPORT INFORMATION
  Report Type: Spontaneous
  Country: US (occurrence: US)
  Receive Date: 20150916
  Receipt Date: 20150916
  Transmission Date: 20151125
  Serious: No
  Sender: FDA-Public Use
  Company Number: US-ELI_LILLY_AND_COMPANY-US201401008021

PATIENT
  Age: 72 Year
  Sex: Male

DRUGS (6)
  1. TRENTAL [Concomitant]
     Active Substance: PENTOXIFYLLINE
  2. HUMALOG [Suspect]
     Active Substance: INSULIN LISPRO
     Indication: TYPE 2 DIABETES MELLITUS
     Dosage: 32 U, QD (10 IN THE MORNING AND LUNCH AND 12 IN THE EVENING)
     Route: 065
     Dates: start: 200401
  3. ATENOLOL. [Concomitant]
     Active Substance: ATENOLOL
  4. HUMALOG [Suspect]
     Active Substance: INSULIN LISPRO
     Dosage: 32 U, QD (10 IN THE MORNING AND LUNCH AND 12 IN THE EVENING)
     Route: 065
  5. BABY ASPIRIN [Concomitant]
     Active Substance: ASPIRIN
  6. QUINAPRIL [Concomitant]
     Active Substance: QUINAPRIL\QUINAPRIL HYDROCHLORIDE
     Indication: BLOOD PRESSURE ABNORMAL
     Dosage: 60 U, UNK

REACTIONS (4)
  - Blood glucose increased [Unknown]
  - Incorrect product storage [Unknown]
  - Anxiety [Unknown]
  - Underdose [Unknown]

NARRATIVE: CASE EVENT DATE: 201401
